FAERS Safety Report 4400074-8 (Version None)
Quarter: 2004Q3

REPORT INFORMATION
  Report Type: 
  Country: None (occurrence: None)
  Receive Date: 20040714
  Receipt Date: 20040630
  Transmission Date: 20050211
  Serious: Yes (Other)
  Sender: FDA-Public Use
  Company Number: 2004218096GB

PATIENT
  Age: 85 Year
  Sex: Female
  Weight: 63 kg

DRUGS (5)
  1. CELEBREX [Suspect]
     Indication: PAIN
     Dosage: 200 MG, QD, ORAL
     Route: 048
  2. CO-PROXAMOL (DETROPROPOXYPHENE HYDROCHLORIDE) [Concomitant]
  3. PROPRANOLOL [Concomitant]
  4. CO-AMILOZIDE [Concomitant]
  5. TRIMIPRAMINE MALEATE [Concomitant]

REACTIONS (10)
  - BLOOD PARATHYROID HORMONE DECREASED [None]
  - BLOOD PHOSPHORUS DECREASED [None]
  - BLOOD POTASSIUM INCREASED [None]
  - HAEMATOCRIT DECREASED [None]
  - HAEMOGLOBIN DECREASED [None]
  - HYPERCALCAEMIA [None]
  - NEUTROPHIL COUNT INCREASED [None]
  - RED BLOOD CELL SEDIMENTATION RATE INCREASED [None]
  - RENAL FAILURE [None]
  - WHITE BLOOD CELL COUNT INCREASED [None]
